FAERS Safety Report 5678800-X (Version None)
Quarter: 2008Q1

REPORT INFORMATION
  Report Type: 
  Country: None (occurrence: None)
  Receive Date: 20080321
  Receipt Date: 20001109
  Transmission Date: 20080703
  Serious: Yes (Hospitalization)
  Sender: FDA-Public Use
  Company Number: US022286

PATIENT
  Age: 1 Day
  Sex: Male

DRUGS (2)
  1. PROVIGIL [Suspect]
     Indication: NARCOLEPSY
     Dosage: 200 MG QD TRANSPLACENTAL
     Route: 064
     Dates: start: 20000101, end: 20000222
  2. NORTRIPTYLINE HCL [Concomitant]

REACTIONS (10)
  - APGAR SCORE LOW [None]
  - CLAVICLE FRACTURE [None]
  - COMPLICATION OF DELIVERY [None]
  - DRUG EXPOSURE DURING PREGNANCY [None]
  - ERB'S PALSY [None]
  - HYPOGLYCAEMIA NEONATAL [None]
  - LARGE FOR DATES BABY [None]
  - NEONATAL DISORDER [None]
  - SHOULDER DYSTOCIA [None]
  - THROMBOCYTOPENIA NEONATAL [None]
